FAERS Safety Report 24139716 (Version 2)
Quarter: 2024Q3

REPORT INFORMATION
  Report Type: Report from Study
  Country: US (occurrence: US)
  Receive Date: 20240726
  Receipt Date: 20240810
  Transmission Date: 20241017
  Serious: Yes (Disabling)
  Sender: SANOFI AVENTIS
  Company Number: US-SA-SAC20240625000297

PATIENT
  Age: 55 Year
  Sex: Female

DRUGS (25)
  1. ALEMTUZUMAB [Suspect]
     Active Substance: ALEMTUZUMAB
     Indication: Relapsing-remitting multiple sclerosis
     Dosage: UNK
     Route: 041
     Dates: start: 20240603
  2. ADDERALL [Concomitant]
     Active Substance: AMPHETAMINE ASPARTATE\AMPHETAMINE SULFATE\DEXTROAMPHETAMINE SACCHARATE\DEXTROAMPHETAMINE SULFATE
     Indication: Fatigue
     Dosage: UNK
  3. ADIPEX-P [Concomitant]
     Active Substance: PHENTERMINE HYDROCHLORIDE
     Indication: Fatigue
     Dosage: 37.5 MG, QD (QAM)
     Route: 048
     Dates: end: 20240612
  4. ADIPEX-P [Concomitant]
     Active Substance: PHENTERMINE HYDROCHLORIDE
     Dosage: 37.5 MG, QD (QAM)
     Route: 048
     Dates: start: 20240712
  5. ACYCLOVIR [Concomitant]
     Active Substance: ACYCLOVIR
     Dosage: 200  MG (1 CAPSULE)
     Dates: start: 20240603
  6. AMLODIPINE BESYLATE [Concomitant]
     Active Substance: AMLODIPINE BESYLATE
     Dosage: 1 DF (1 TABLET), QD
  7. BACLOFEN [Concomitant]
     Active Substance: BACLOFEN
     Dosage: 30 MG (1 1/2 TABLET), QD
     Route: 048
  8. DALFAMPRIDINE [Concomitant]
     Active Substance: DALFAMPRIDINE
     Dosage: 10 MG, BID
     Route: 048
  9. DESMOPRESSIN [Concomitant]
     Active Substance: DESMOPRESSIN
     Dosage: 20 UG, HS (10 MCG/SPRAY (0.1 ML) INHALE 1 SPRAY IN EACH NOSTRIL)
     Route: 055
  10. FLEXERIL [Concomitant]
     Active Substance: CYCLOBENZAPRINE HYDROCHLORIDE
     Dosage: 10 MG, TID
  11. FLUOXETINE [Concomitant]
     Active Substance: FLUOXETINE HYDROCHLORIDE
     Dosage: 60 MG (3 CAPSULES), QD (EVERY MORNING)
     Route: 048
  12. HYDROXYZINE HYDROCHLORIDE [Concomitant]
     Active Substance: HYDROXYZINE HYDROCHLORIDE
     Dosage: HS (TAKE ONE TO TWO TABLETS BY MOUTH AT BEDTIME)
     Route: 048
  13. LACOSAMIDE [Concomitant]
     Active Substance: LACOSAMIDE
     Dosage: 100  MG, BID AFTER 7 DAY ESCULATION
     Route: 048
  14. LASIX [Concomitant]
     Active Substance: FUROSEMIDE
     Indication: Oedema
     Dosage: 40 MG, PRN
  15. MYRBETRIQ [Concomitant]
     Active Substance: MIRABEGRON
     Dosage: 50  MG (1 TABLET), QD
     Route: 048
  16. NUVIGIL [Concomitant]
     Active Substance: ARMODAFINIL
     Dosage: 150  MG, QD (AM)
  17. PIROXICAM [Concomitant]
     Active Substance: PIROXICAM
     Dosage: 20 MG, QD
  18. PREDNISONE [Concomitant]
     Active Substance: PREDNISONE
     Dosage: 60 MG ((1.0 TABLET) 20 MG 3), QD (Q AM)
     Route: 048
     Dates: start: 20240608
  19. PREDNISONE [Concomitant]
     Active Substance: PREDNISONE
     Dosage: 20 MG (1 TABLET), QD (Q AM)
     Route: 048
  20. SEPTRA DS [Concomitant]
     Active Substance: SULFAMETHOXAZOLE\TRIMETHOPRIM
     Dosage: 1 DF, QOD (800-160 MG)
     Route: 048
     Dates: start: 20240603
  21. TAGAMET HB [Concomitant]
     Active Substance: CIMETIDINE
     Dosage: 200  MG (1 TABLET), QD
     Route: 048
     Dates: start: 20240601
  22. VALIUM [Concomitant]
     Active Substance: DIAZEPAM
     Dosage: 10  MG (1 PO 30 TO 40 MIN PRIOR TO MRI1 AT THE TIME OF MRIAND 1 ADDITIONAL IF NEEDED)
     Route: 048
  23. VITAMIN D3 [Concomitant]
     Active Substance: CHOLECALCIFEROL
     Dosage: 5000  U (125 MCG), QD
  24. ZOFRAN [Concomitant]
     Active Substance: ONDANSETRON HYDROCHLORIDE
     Indication: Nausea
     Dosage: 8 MG (1 TABLET Q 6-8 HOURS), PRN
     Route: 048
  25. SUMATRIPTAN [Concomitant]
     Active Substance: SUMATRIPTAN
     Indication: Migraine
     Dosage: UNK

REACTIONS (10)
  - Gait disturbance [Recovering/Resolving]
  - Back pain [Unknown]
  - Muscle spasms [Unknown]
  - Anxiety [Unknown]
  - Oedema peripheral [Unknown]
  - Fatigue [Not Recovered/Not Resolved]
  - Pain [Recovering/Resolving]
  - Headache [Unknown]
  - Asthenia [Unknown]
  - Heart rate increased [Unknown]

NARRATIVE: CASE EVENT DATE: 20240101
